FAERS Safety Report 13211115 (Version 2)
Quarter: 2017Q1

REPORT INFORMATION
  Report Type: Spontaneous
  Country: US (occurrence: US)
  Receive Date: 20170210
  Receipt Date: 20170306
  Transmission Date: 20170428
  Serious: No
  Sender: FDA-Public Use
  Company Number: US-PFIZER INC-2017056848

PATIENT
  Age: 66 Year
  Sex: Female

DRUGS (2)
  1. ATIVAN [Suspect]
     Active Substance: LORAZEPAM
     Dosage: UNK
  2. XANAX [Suspect]
     Active Substance: ALPRAZOLAM
     Dosage: UNK

REACTIONS (1)
  - Drug ineffective [Unknown]
